FAERS Safety Report 4722992-3 (Version None)
Quarter: 2005Q3

REPORT INFORMATION
  Report Type: 
  Country: None (occurrence: None)
  Receive Date: 20050719
  Receipt Date: 20040624
  Transmission Date: 20060218
  Serious: Yes (Hospitalization)
  Sender: FDA-Public Use
  Company Number: 2004215010US

PATIENT
  Age: 71 Year
  Sex: Female

DRUGS (5)
  1. CELEBREX [Suspect]
     Indication: ARTHRITIS
     Dosage: 200 MG, QD, ORAL
     Route: 048
     Dates: start: 20031031, end: 20031031
  2. CALTRATE [Concomitant]
  3. MULTIVITAMINS (ERGOCALCIFEROL, RETINOL, PATHENOL) [Concomitant]
  4. ASPIRIN [Concomitant]
  5. VALSARTAN [Concomitant]

REACTIONS (4)
  - ANAPHYLACTIC SHOCK [None]
  - FATIGUE [None]
  - LOSS OF CONSCIOUSNESS [None]
  - VISUAL ACUITY REDUCED [None]
